FAERS Safety Report 9036565 (Version 1)
Quarter: 2013Q1

REPORT INFORMATION
  Report Type: Report from Study
  Country: US (occurrence: US)
  Receive Date: 20130129
  Receipt Date: 20130129
  Transmission Date: 20140127
  Serious: Yes (Other)
  Sender: FDA-Public Use
  Company Number: US-ABBOTT-12P-163-0895916-00

PATIENT
  Age: 38 None
  Sex: Female
  Weight: 58.11 kg

DRUGS (4)
  1. HUMIRA 40 MG/0.8 ML PEN [Suspect]
     Indication: CROHN^S DISEASE
     Dates: start: 201110
  2. LOMOTIL [Concomitant]
     Indication: CROHN^S DISEASE
  3. CIPRO [Concomitant]
     Indication: CROHN^S DISEASE
  4. ZOLOFT [Concomitant]
     Indication: DEPRESSION
     Dates: start: 20120113

REACTIONS (9)
  - Dehydration [Recovered/Resolved]
  - Myalgia [Not Recovered/Not Resolved]
  - Myalgia [Not Recovered/Not Resolved]
  - Arthralgia [Recovered/Resolved]
  - Drug ineffective [Not Recovered/Not Resolved]
  - Crohn^s disease [Not Recovered/Not Resolved]
  - Abdominal pain [Not Recovered/Not Resolved]
  - Diarrhoea [Not Recovered/Not Resolved]
  - Fatigue [Not Recovered/Not Resolved]
